FAERS Safety Report 19138217 (Version 1)
Quarter: 2021Q2

REPORT INFORMATION
  Report Type: Spontaneous
  Country: US (occurrence: US)
  Receive Date: 20210415
  Receipt Date: 20210415
  Transmission Date: 20210717
  Serious: Yes (Other)
  Sender: FDA-Public Use
  Company Number: US-ROCHE-2811398

PATIENT
  Sex: Female

DRUGS (5)
  1. ESBRIET [Suspect]
     Active Substance: PIRFENIDONE
     Indication: IDIOPATHIC PULMONARY FIBROSIS
     Route: 048
  2. EUCRISA [Concomitant]
     Active Substance: CRISABOROLE
  3. ATORVASTIN [Concomitant]
     Active Substance: ATORVASTATIN
  4. DUPIXENT [Concomitant]
     Active Substance: DUPILUMAB
  5. NITROGLYCERIN. [Concomitant]
     Active Substance: NITROGLYCERIN

REACTIONS (1)
  - Neoplasm malignant [Not Recovered/Not Resolved]
